FAERS Safety Report 5004506-6 (Version None)
Quarter: 2006Q2

REPORT INFORMATION
  Report Type: 
  Country: None (occurrence: None)
  Receive Date: 20060517
  Receipt Date: 20060424
  Transmission Date: 20061013
  Serious: Yes (Other)
  Sender: FDA-Public Use
  Company Number: AU-GLAXOSMITHKLINE-B0421278A

PATIENT
  Age: 47 Year
  Sex: Female

DRUGS (4)
  1. NICABATE CQ CLEAR 21MG [Suspect]
     Dosage: 21MG PER DAY
     Route: 062
     Dates: start: 20060201, end: 20060301
  2. DIAMICRON [Concomitant]
     Route: 065
  3. DIAFORMIN [Concomitant]
     Route: 065
  4. ELOCON [Concomitant]
     Indication: PSORIASIS
     Route: 065

REACTIONS (2)
  - PSORIASIS [None]
  - TREATMENT NONCOMPLIANCE [None]
